FAERS Safety Report 9344114 (Version 2)
Quarter: 2013Q3

REPORT INFORMATION
  Report Type: Report from Study
  Country: HU (occurrence: HU)
  Receive Date: 20130612
  Receipt Date: 20130918
  Transmission Date: 20140515
  Serious: Yes (Life-Threatening, Hospitalization)
  Sender: FDA-Public Use
  Company Number: HU-ROCHE-1174164

PATIENT
  Age: 71 Year
  Sex: Female
  Weight: 66 kg

DRUGS (17)
  1. TOCILIZUMAB [Suspect]
     Indication: RHEUMATOID ARTHRITIS
     Dosage: LAST DOSE PRIOR TO SAE: 27/NOV/2012
     Route: 042
     Dates: start: 20121002
  2. METHOTREXATE [Concomitant]
     Indication: RHEUMATOID ARTHRITIS
     Route: 048
     Dates: start: 2005
  3. MEDROL [Concomitant]
     Indication: RHEUMATOID ARTHRITIS
     Route: 048
     Dates: start: 201205
  4. DICLOFENAC [Concomitant]
     Indication: RHEUMATOID ARTHRITIS
     Route: 048
     Dates: start: 2010
  5. ZALDIAR [Concomitant]
     Indication: RHEUMATOID ARTHRITIS
     Route: 048
     Dates: start: 2010
  6. CITROKALCIUM [Concomitant]
     Indication: OSTEOPOROSIS
     Route: 048
     Dates: start: 2010
  7. VITAMIN D3 FRESENIUS [Concomitant]
     Indication: OSTEOPOROSIS
     Route: 048
     Dates: start: 2010
  8. PROLIA [Concomitant]
     Indication: OSTEOPOROSIS
     Route: 058
     Dates: start: 201206
  9. HYPOTHIAZID [Concomitant]
     Indication: HYPERTENSION
     Route: 048
     Dates: start: 201201
  10. KALDYUM [Concomitant]
     Indication: HYPERTENSION
     Route: 048
     Dates: start: 201201
  11. ROSUVASTATIN [Concomitant]
     Indication: HYPERLIPIDAEMIA
     Route: 048
     Dates: start: 201201, end: 20121207
  12. FOLSAV [Concomitant]
     Route: 048
     Dates: start: 201001
  13. FRONTIN [Concomitant]
     Indication: SLEEP DISORDER
     Route: 048
     Dates: start: 201206
  14. PRITOR PLUS [Concomitant]
     Indication: HYPERTENSION
     Route: 048
  15. SORTIS [Concomitant]
     Route: 048
  16. CONTROLOC (HUNGARY) [Concomitant]
     Route: 048
     Dates: start: 20121208
  17. XANAX [Concomitant]
     Route: 048
     Dates: start: 20121208

REACTIONS (1)
  - Myocardial infarction [Recovered/Resolved]
